FAERS Safety Report 8782974 (Version 1)
Quarter: 2012Q4

REPORT INFORMATION
  Report Type: Report from Study
  Country: US (occurrence: US)
  Receive Date: 20120913
  Receipt Date: 20120913
  Transmission Date: 20130627
  Serious: No
  Sender: FDA-Public Use
  Company Number: US-VERTEX PHARMACEUTICAL INC.-AE-2012-008680

PATIENT

DRUGS (5)
  1. INCIVEK [Suspect]
     Indication: HEPATITIS C
     Route: 048
  2. PEGASYS [Concomitant]
     Indication: HEPATITIS C
  3. RIBAPAK [Concomitant]
     Indication: HEPATITIS C
  4. TYLENOL [Concomitant]
  5. TRIAMCINOLON [Concomitant]

REACTIONS (7)
  - Mucosal dryness [Unknown]
  - Flatulence [Unknown]
  - Urticaria [Unknown]
  - Platelet count decreased [Unknown]
  - Diarrhoea [Unknown]
  - Anal pruritus [Unknown]
  - Anorectal discomfort [Unknown]
